FAERS Safety Report 9290447 (Version 1)
Quarter: 2013Q2

REPORT INFORMATION
  Report Type: Spontaneous
  Country: FR (occurrence: FR)
  Receive Date: 20130515
  Receipt Date: 20130515
  Transmission Date: 20140414
  Serious: Yes (Hospitalization)
  Sender: FDA-Public Use
  Company Number: FR-PFIZER INC-2013141949

PATIENT
  Age: 47 Year
  Sex: Female

DRUGS (3)
  1. TRINORDIOL [Suspect]
     Indication: ORAL CONTRACEPTION
     Dosage: 1 DF, 1X/DAY
     Route: 048
     Dates: start: 1989, end: 20120313
  2. VENTOLINE [Concomitant]
     Indication: ASTHMA
     Dosage: UNK
     Route: 055
  3. BECOTIDE [Concomitant]
     Indication: ASTHMA
     Dosage: UNK
     Route: 055

REACTIONS (2)
  - Ischaemic stroke [Recovered/Resolved]
  - Phlebitis superficial [Recovered/Resolved]
